FAERS Safety Report 9365396 (Version 3)
Quarter: 2013Q3

REPORT INFORMATION
  Report Type: Report from Study
  Country: VE (occurrence: VE)
  Receive Date: 20130625
  Receipt Date: 20130823
  Transmission Date: 20140515
  Serious: Yes (Hospitalization)
  Sender: FDA-Public Use
  Company Number: VE-ROCHE-1240947

PATIENT
  Sex: Female

DRUGS (1)
  1. OMALIZUMAB [Suspect]
     Indication: ASTHMA
     Route: 058
     Dates: start: 20130429

REACTIONS (6)
  - Pneumonia [Recovered/Resolved]
  - Dermatitis allergic [Recovering/Resolving]
  - HIV test positive [Recovering/Resolving]
  - Asthma [Recovered/Resolved]
  - Conjunctivitis [Recovering/Resolving]
  - Fungal skin infection [Recovering/Resolving]
